FAERS Safety Report 7526064-4 (Version None)
Quarter: 2011Q2

REPORT INFORMATION
  Report Type: 
  Country: None (occurrence: None)
  Receive Date: 20110526
  Receipt Date: 20110512
  Transmission Date: 20111010
  Serious: Yes (Hospitalization)
  Sender: FDA-Public Use
  Company Number: JP-DEXPHARM-20110513

PATIENT
  Age: 80 Year
  Sex: Female

DRUGS (2)
  1. LAROXIFENE [Concomitant]
  2. OMEPRAZOLE [Suspect]
     Dosage: 20 MG  MILLIGRAM(S) SEP. DOSAGES /INTERVAL: 1 IN 1 DAY

REACTIONS (11)
  - FATIGUE [None]
  - DEHYDRATION [None]
  - CARDIAC MURMUR [None]
  - PROTEINURIA [None]
  - HYPOKALAEMIA [None]
  - RENAL FAILURE ACUTE [None]
  - AZOTAEMIA [None]
  - ANAEMIA [None]
  - OEDEMA PERIPHERAL [None]
  - BLOOD BICARBONATE DECREASED [None]
  - METABOLIC ACIDOSIS [None]
